FAERS Safety Report 16368821 (Version 1)
Quarter: 2019Q2

REPORT INFORMATION
  Report Type: Spontaneous
  Country: US (occurrence: US)
  Receive Date: 20190529
  Receipt Date: 20190529
  Transmission Date: 20190711
  Serious: No
  Sender: FDA-Public Use
  Company Number: US-NEUROCRINE BIOSCIENCES INC.-2019NBI01284

PATIENT
  Age: 30 Year
  Sex: Female

DRUGS (5)
  1. SAPHRIS [Concomitant]
     Active Substance: ASENAPINE MALEATE
  2. ATIVAN [Concomitant]
     Active Substance: LORAZEPAM
  3. INGREZZA [Suspect]
     Active Substance: VALBENAZINE
     Indication: TARDIVE DYSKINESIA
  4. LATUDA [Concomitant]
     Active Substance: LURASIDONE HYDROCHLORIDE
  5. GABAPENTIN. [Concomitant]
     Active Substance: GABAPENTIN

REACTIONS (2)
  - Suicidal ideation [Recovered/Resolved]
  - Hallucinations, mixed [Recovered/Resolved]
